FAERS Safety Report 23349687 (Version 1)
Quarter: 2023Q4

REPORT INFORMATION
  Report Type: Spontaneous
  Country: ES (occurrence: ES)
  Receive Date: 20231229
  Receipt Date: 20231229
  Transmission Date: 20240109
  Serious: Yes (Other)
  Sender: FDA-Public Use
  Company Number: None

PATIENT
  Age: 95 Year
  Sex: Male

DRUGS (5)
  1. RISPERDAL [Suspect]
     Active Substance: RISPERIDONE
     Indication: Aggression
     Dosage: 1.0 COMP A-DECE
     Route: 048
     Dates: start: 20231121
  2. PROMETAX [RIVASTIGMINE] [Concomitant]
     Indication: Dementia Alzheimer^s type
     Dosage: 4.6 MG C/24 H
     Dates: start: 20230329
  3. BRINTELLIX [Concomitant]
     Active Substance: VORTIOXETINE HYDROBROMIDE
     Indication: Depression
     Dosage: 5.0 MG DE
     Route: 048
     Dates: start: 20230201
  4. LATANOPROST\TIMOLOL MALEATE [Concomitant]
     Active Substance: LATANOPROST\TIMOLOL MALEATE
     Indication: Glaucoma
     Dosage: 1.0 GTS C/24 H
     Route: 047
     Dates: start: 20151224
  5. ENALAPRIL [Concomitant]
     Active Substance: ENALAPRIL
     Indication: Essential hypertension
     Dosage: 20.0 MG DE
     Route: 048
     Dates: start: 20231122

REACTIONS (2)
  - Hallucination [Unknown]
  - Nightmare [Unknown]

NARRATIVE: CASE EVENT DATE: 20231210
